FAERS Safety Report 23282279 (Version 1)
Quarter: 2023Q4

REPORT INFORMATION
  Report Type: Spontaneous
  Country: US (occurrence: US)
  Receive Date: 20231211
  Receipt Date: 20231211
  Transmission Date: 20240109
  Serious: No
  Sender: FDA-Public Use
  Company Number: US-SA-SAC20231208000289

PATIENT
  Age: 40 Year
  Sex: Male
  Weight: 89.81 kg

DRUGS (2)
  1. DUPIXENT [Suspect]
     Active Substance: DUPILUMAB
     Indication: Dermatitis atopic
     Dosage: 300MG EVERY 2 WEEKS
     Route: 058
  2. EMTRICITABINE\TENOFOVIR [Concomitant]
     Active Substance: EMTRICITABINE\TENOFOVIR
     Dosage: UNK

REACTIONS (1)
  - Depression [Unknown]

NARRATIVE: CASE EVENT DATE: 20231101
